FAERS Safety Report 24445287 (Version 1)
Quarter: 2024Q4

REPORT INFORMATION
  Report Type: Spontaneous
  Country: US (occurrence: None)
  Receive Date: 20241016
  Receipt Date: 20241016
  Transmission Date: 20250115
  Serious: Yes (Other)
  Sender: Public
  Company Number: None

PATIENT
  Age: 59 Year
  Sex: Male

DRUGS (1)
  1. HERBALS\TETRAHYDROCANNABINOL UNSPECIFIED [Suspect]
     Active Substance: HERBALS\TETRAHYDROCANNABINOL UNSPECIFIED

REACTIONS (8)
  - Nausea [None]
  - Dyspnoea [None]
  - Product contamination physical [None]
  - Drug ineffective [None]
  - Product taste abnormal [None]
  - Product odour abnormal [None]
  - Product physical issue [None]
  - Product physical issue [None]

NARRATIVE: CASE EVENT DATE: 20240901
